FAERS Safety Report 5759856-2 (Version None)
Quarter: 2008Q2

REPORT INFORMATION
  Report Type: 
  Country: None (occurrence: None)
  Receive Date: 20080605
  Receipt Date: 20080529
  Transmission Date: 20081010
  Serious: Yes (Hospitalization)
  Sender: FDA-Public Use
  Company Number: PHHY2008NL09147

PATIENT

DRUGS (1)
  1. DIOVAN [Suspect]

REACTIONS (1)
  - POLYARTERITIS NODOSA [None]
